FAERS Safety Report 6526284-1 (Version None)
Quarter: 2009Q4

REPORT INFORMATION
  Report Type: 
  Country: None (occurrence: None)
  Receive Date: 20091228
  Receipt Date: 20091210
  Transmission Date: 20100525
  Serious: Yes (Hospitalization, Other)
  Sender: FDA-Public Use
  Company Number: 8052892

PATIENT
  Sex: Male

DRUGS (11)
  1. CERTOLIZUMAB PEGOL [Suspect]
     Indication: CROHN'S DISEASE
     Dosage: (SUBCUTANEOUS)
     Route: 058
     Dates: start: 20090201
  2. ASACOL [Concomitant]
  3. ZOFRAN [Concomitant]
  4. LISINOPRIL [Concomitant]
  5. SIMVASTATIN [Concomitant]
  6. METOPROLOL [Concomitant]
  7. ASPIRIN [Concomitant]
  8. IRON [Concomitant]
  9. CALCIUM [Concomitant]
  10. PERCOCET [Concomitant]
  11. PREDNISONE [Concomitant]

REACTIONS (6)
  - CHILLS [None]
  - GASTROINTESTINAL INFECTION [None]
  - HEADACHE [None]
  - HOT FLUSH [None]
  - PRURITUS GENERALISED [None]
  - PYREXIA [None]
